FAERS Safety Report 21437018 (Version 2)
Quarter: 2022Q4

REPORT INFORMATION
  Report Type: Spontaneous
  Country: US (occurrence: US)
  Receive Date: 20221010
  Receipt Date: 20221013
  Transmission Date: 20230112
  Serious: Yes (Other)
  Sender: FDA-Public Use
  Company Number: US-PFIZER INC-PV202200078469

PATIENT
  Age: 62 Year
  Sex: Female

DRUGS (1)
  1. PAXLOVID [Suspect]
     Active Substance: NIRMATRELVIR\RITONAVIR
     Indication: COVID-19 treatment
     Dosage: UNK

REACTIONS (7)
  - Product size issue [Unknown]
  - Choking [Unknown]
  - Dysphagia [Unknown]
  - Therapeutic product effect incomplete [Unknown]
  - Vision blurred [Unknown]
  - Frustration tolerance decreased [Unknown]
  - Illness [Unknown]
